FAERS Safety Report 5140716-5 (Version None)
Quarter: 2006Q4

REPORT INFORMATION
  Report Type: 
  Country: None (occurrence: None)
  Receive Date: 20061025
  Receipt Date: 20061012
  Transmission Date: 20070319
  Serious: Yes (Hospitalization)
  Sender: FDA-Public Use
  Company Number: 229013

PATIENT
  Age: 49 Year
  Sex: Male
  Weight: 80 kg

DRUGS (8)
  1. MABTHERA  (RITUXIMAB) CONC FOR SOLUTION FOR INFUSION [Suspect]
     Indication: CHRONIC LYMPHOCYTIC LEUKAEMIA
     Dosage: 985 MG, Q4W, INTRAVENOUS
     Route: 042
     Dates: start: 20060215, end: 20060704
  2. CYCLOPHOSPHAMIDE [Suspect]
     Indication: CHRONIC LYMPHOCYTIC LEUKAEMIA
     Dosage: 490 MG, Q4W, INTRAVENOUS
     Route: 042
  3. FLUDARABINE PHOSPHATE [Suspect]
     Indication: CHRONIC LYMPHOCYTIC LEUKAEMIA
     Dosage: 49 MG, Q4W, INTRAVENOUS
     Route: 042
     Dates: start: 20060217, end: 20060704
  4. TEGRETOL [Concomitant]
  5. ATORVASTATIN (ATORVASTATIN CALCIUM) [Concomitant]
  6. GLICLAZIDE [Concomitant]
  7. PIOGLITAZONE HCL [Concomitant]
  8. NPH INSULIN [Concomitant]

REACTIONS (10)
  - BLOOD CULTURE POSITIVE [None]
  - CELLULITIS [None]
  - HAEMOGLOBIN DECREASED [None]
  - IMMUNOSUPPRESSION [None]
  - LIMB INJURY [None]
  - MALAISE [None]
  - OSTEOMYELITIS [None]
  - PNEUMOCOCCAL INFECTION [None]
  - PURULENCE [None]
  - STREPTOCOCCAL INFECTION [None]
